FAERS Safety Report 7093030-5 (Version None)
Quarter: 2010Q4

REPORT INFORMATION
  Report Type: 
  Country: None (occurrence: None)
  Receive Date: 20101109
  Receipt Date: 20101109
  Transmission Date: 20110411
  Serious: Yes (Life-Threatening, Hospitalization)
  Sender: FDA-Public Use
  Company Number: None

PATIENT
  Age: 67 Year
  Sex: Female
  Weight: 44.4525 kg

DRUGS (2)
  1. AMPYRA [Suspect]
     Indication: MULTIPLE SCLEROSIS
     Dosage: EVERY 8 HRS
     Dates: start: 20060101
  2. OXYBUTYNIN [Suspect]
     Indication: MULTIPLE SCLEROSIS
     Dosage: EVERY 8 HRS

REACTIONS (3)
  - DRUG DOSE OMISSION [None]
  - HEAD INJURY [None]
  - LOSS OF CONSCIOUSNESS [None]
